FAERS Safety Report 10034314 (Version 1)
Quarter: 2014Q1

REPORT INFORMATION
  Report Type: Spontaneous
  Country: US (occurrence: None)
  Receive Date: 20140324
  Receipt Date: 20140324
  Transmission Date: 20141002
  Serious: Yes (Life-Threatening, Hospitalization)
  Sender: FDA-Public Use
  Company Number: None

PATIENT
  Age: 46 Year
  Sex: Male
  Weight: 98 kg

DRUGS (11)
  1. IPILIMUMAB [Suspect]
     Indication: MALIGNANT MELANOMA
     Dosage: 1020 MG (10 MG/KG) EVERY 21 DAYS INTRAVENOUS
     Route: 042
     Dates: start: 20140120
  2. CALCIUM [Concomitant]
  3. VITAMIN B-12 [Concomitant]
  4. FISH OIL [Concomitant]
  5. GLUCOSAMINE/CHONDROITIN [Concomitant]
  6. IBUPROFEN [Concomitant]
  7. LEVOTHYROXINE [Concomitant]
  8. LORAZEPAM [Concomitant]
  9. MULTIVITAMIN [Concomitant]
  10. ONDANSETRON [Concomitant]
  11. SAW PALMETTO [Concomitant]

REACTIONS (3)
  - Meningitis aseptic [None]
  - Rash pruritic [None]
  - Diarrhoea [None]
